FAERS Safety Report 13121772 (Version 2)
Quarter: 2017Q1

REPORT INFORMATION
  Report Type: Report from Study
  Country: CO (occurrence: CO)
  Receive Date: 20170117
  Receipt Date: 20170120
  Transmission Date: 20170428
  Serious: Yes (Hospitalization)
  Sender: FDA-Public Use
  Company Number: CO-JNJFOC-20161210432

PATIENT
  Age: 68 Year
  Sex: Male
  Weight: 85 kg

DRUGS (1)
  1. RISPERDAL CONSTA [Suspect]
     Active Substance: RISPERIDONE
     Indication: BIPOLAR DISORDER
     Route: 030
     Dates: start: 20160104

REACTIONS (5)
  - Aggression [Recovering/Resolving]
  - Abnormal behaviour [Recovering/Resolving]
  - Arthralgia [Recovering/Resolving]
  - Gait disturbance [Recovering/Resolving]
  - Fall [Recovering/Resolving]

NARRATIVE: CASE EVENT DATE: 2016
